FAERS Safety Report 7160739-4 (Version None)
Quarter: 2010Q4

REPORT INFORMATION
  Report Type: 
  Country: None (occurrence: None)
  Receive Date: 20101214
  Receipt Date: 20091221
  Transmission Date: 20110411
  Serious: Yes (Other)
  Sender: FDA-Public Use
  Company Number: US-AMGEN-QUU378475

PATIENT

DRUGS (2)
  1. ENBREL [Suspect]
     Indication: PSORIATIC ARTHROPATHY
     Dosage: 25 MG, QWK
     Route: 058
     Dates: start: 20041215
  2. UNSPECIFIED ANTIBIOTIC [Concomitant]
     Dosage: UNK UNK, UNK

REACTIONS (3)
  - FURUNCLE [None]
  - SKIN CANCER [None]
  - STAPHYLOCOCCAL SKIN INFECTION [None]
